FAERS Safety Report 10445666 (Version 4)
Quarter: 2016Q4

REPORT INFORMATION
  Report Type: Spontaneous
  Country: US (occurrence: US)
  Receive Date: 20140908
  Receipt Date: 20161012
  Transmission Date: 20170206
  Serious: Yes (Hospitalization, Other)
  Sender: FDA-Public Use
  Company Number: US-PFIZER INC-2014248920

PATIENT
  Age: 55 Year
  Sex: Female
  Weight: 105.67 kg

DRUGS (24)
  1. LISINOPRIL. [Concomitant]
     Active Substance: LISINOPRIL
     Dosage: 20 MG, DAILY
     Route: 048
  2. VENTOLIN HFA [Concomitant]
     Active Substance: ALBUTEROL SULFATE
     Indication: DYSPNOEA
     Dosage: 2 DF, EVERY 4 HOURS AS NEEDED
     Route: 055
  3. LYRICA [Suspect]
     Active Substance: PREGABALIN
     Indication: DIABETIC NEUROPATHY
     Dosage: 150 MG, 2X/DAY
     Route: 048
  4. LIPITOR [Concomitant]
     Active Substance: ATORVASTATIN CALCIUM
     Indication: BLOOD CHOLESTEROL INCREASED
     Dosage: 80 MG A DAY
  5. LYRICA [Suspect]
     Active Substance: PREGABALIN
     Indication: PLANTAR FASCIITIS
  6. CLOPIDOGREL [Concomitant]
     Active Substance: CLOPIDOGREL BISULFATE
     Dosage: 75 MG, DAILY
     Route: 048
  7. DIAZEPAM. [Concomitant]
     Active Substance: DIAZEPAM
     Dosage: 5 MG, 3X/DAY
     Route: 048
  8. EPIPEN [Concomitant]
     Active Substance: EPINEPHRINE
     Indication: ANAPHYLACTIC REACTION
     Dosage: AS DIRECTED
  9. VENTOLIN HFA [Concomitant]
     Active Substance: ALBUTEROL SULFATE
     Indication: WHEEZING
  10. ACYCLOVIR. [Concomitant]
     Active Substance: ACYCLOVIR
     Dosage: 1 APPLICATION(S) EVERY 3 HOURS BY TOPICAL ROUTE AS NEEDED
     Route: 061
  11. AMOXICILLIN AND CLAVULANATE POTASSIUM [Concomitant]
     Active Substance: AMOXICILLIN\CLAVULANATE POTASSIUM
     Dosage: 1 DF, 2X/DAY
     Route: 048
  12. IPRATROPIUM/ALBUTEROL [Concomitant]
     Active Substance: ALBUTEROL\IPRATROPIUM
     Indication: WHEEZING
     Dosage: 3 ML 4 TIMES A DAY
     Route: 055
  13. NITROFURANTOIN MONOHYDRATE MACROCRYSTALS [Concomitant]
     Active Substance: NITROFURANTOIN\NITROFURANTOIN MONOHYDRATE
     Dosage: 100 MG, UNK
  14. OXYCODONE [Concomitant]
     Active Substance: OXYCODONE
     Dosage: 20 MG, 3X/DAY EVERY 8 HOURS
     Route: 048
  15. PANTOPRAZOLE [Concomitant]
     Active Substance: PANTOPRAZOLE SODIUM
     Dosage: 40 MG, DAILY
     Route: 048
  16. MORPHINE [Concomitant]
     Active Substance: MORPHINE
     Dosage: AT NIGHT
  17. MORPHINE [Concomitant]
     Active Substance: MORPHINE
     Dosage: 15 MG, 2X/DAY
     Route: 048
  18. CITALOPRAM [Concomitant]
     Active Substance: CITALOPRAM HYDROBROMIDE
     Dosage: 40 MG, DAILY
  19. FLOVENT HFA [Concomitant]
     Active Substance: FLUTICASONE PROPIONATE
     Dosage: 2 DF, 2X/DAY [INHALE 2 PUFF(S) TWICE A DAY]
     Route: 055
  20. IPRATROPIUM/ALBUTEROL [Concomitant]
     Active Substance: ALBUTEROL\IPRATROPIUM
     Indication: DYSPNOEA
  21. NITROSTAT [Concomitant]
     Active Substance: NITROGLYCERIN
     Dosage: 0.4 MG, AS NEEDED
     Route: 060
  22. PRAVASTATIN. [Concomitant]
     Active Substance: PRAVASTATIN
     Dosage: 40 MG, DAILY
     Route: 048
  23. CELEXA [Concomitant]
     Active Substance: CITALOPRAM HYDROBROMIDE
     Dosage: UNK
  24. TRAZODONE [Concomitant]
     Active Substance: TRAZODONE HYDROCHLORIDE
     Dosage: 100 MG, AT BEDTIME
     Route: 048

REACTIONS (19)
  - Mental impairment [Unknown]
  - Back disorder [Unknown]
  - Hallucination [Unknown]
  - Dissociation [Unknown]
  - Hemiparesis [Unknown]
  - Speech disorder [Unknown]
  - Feeling abnormal [Unknown]
  - Feeling of body temperature change [Unknown]
  - Memory impairment [Unknown]
  - Muscle twitching [Unknown]
  - Cerebrovascular accident [Recovered/Resolved with Sequelae]
  - Somnolence [Not Recovered/Not Resolved]
  - Sleep disorder [Recovering/Resolving]
  - Facial paralysis [Unknown]
  - Confusional state [Unknown]
  - Hypertension [Unknown]
  - Peripheral swelling [Unknown]
  - Dizziness [Unknown]
  - Dysphagia [Unknown]

NARRATIVE: CASE EVENT DATE: 20150305
